FAERS Safety Report 24221697 (Version 1)
Quarter: 2024Q3

REPORT INFORMATION
  Report Type: Spontaneous
  Country: CN (occurrence: CN)
  Receive Date: 20240819
  Receipt Date: 20240819
  Transmission Date: 20241016
  Serious: Yes (Hospitalization, Other)
  Sender: TAKEDA
  Company Number: CN-HUTCHMED LIMITED-HMP2024CN01854

PATIENT
  Age: 75 Year
  Sex: Male
  Weight: 71 kg

DRUGS (6)
  1. FRUQUINTINIB [Suspect]
     Active Substance: FRUQUINTINIB
     Indication: Gastric cancer
     Dosage: UNK
     Route: 048
     Dates: start: 20240703
  2. FRUQUINTINIB [Suspect]
     Active Substance: FRUQUINTINIB
     Dosage: 2 MILLIGRAM, QD
     Route: 048
     Dates: start: 20240725, end: 20240808
  3. SINTILIMAB [Concomitant]
     Active Substance: SINTILIMAB
     Indication: Gastric cancer
     Dosage: UNK
     Route: 041
     Dates: start: 20240703
  4. SINTILIMAB [Concomitant]
     Active Substance: SINTILIMAB
     Dosage: 200 MILLIGRAM, QD
     Route: 041
     Dates: start: 20240724, end: 20240724
  5. PACLITAXEL [Concomitant]
     Active Substance: PACLITAXEL
     Indication: Gastric cancer
     Dosage: UNK
     Route: 065
     Dates: start: 20240703
  6. PACLITAXEL [Concomitant]
     Active Substance: PACLITAXEL
     Dosage: 200 MILLIGRAM, QD
     Route: 041
     Dates: start: 20240725, end: 20240725

REACTIONS (4)
  - Myelosuppression [Recovering/Resolving]
  - Platelet count decreased [Unknown]
  - Off label use [Unknown]
  - Underdose [Unknown]

NARRATIVE: CASE EVENT DATE: 20240703
